FAERS Safety Report 6782913-9 (Version None)
Quarter: 2010Q2

REPORT INFORMATION
  Report Type: 
  Country: None (occurrence: None)
  Receive Date: 20100622
  Receipt Date: 20100615
  Transmission Date: 20101027
  Serious: Yes (Hospitalization)
  Sender: FDA-Public Use
  Company Number: AU-BIOGENIDEC-2010BI020182

PATIENT
  Age: 47 Year
  Sex: Male

DRUGS (1)
  1. AVONEX [Suspect]
     Dosage: DOSE UNIT:30
     Route: 030
     Dates: end: 20100401

REACTIONS (3)
  - ADVERSE DRUG REACTION [None]
  - HYPERSENSITIVITY [None]
  - LIVER INJURY [None]
